FAERS Safety Report 7365676-8 (Version None)
Quarter: 2011Q1

REPORT INFORMATION
  Report Type: 
  Country: None (occurrence: None)
  Receive Date: 20110322
  Receipt Date: 20100917
  Transmission Date: 20110831
  Serious: Yes (Hospitalization)
  Sender: FDA-Public Use
  Company Number: US-BAYER-201020596NA

PATIENT
  Sex: Female
  Weight: 76.19 kg

DRUGS (2)
  1. SARAFEM [Concomitant]
     Dosage: UNK UNK, QD
     Dates: start: 20010401, end: 20031101
  2. YASMIN [Suspect]
     Indication: PREMENSTRUAL SYNDROME
     Dosage: UNK UNK, QD
     Route: 048
     Dates: start: 20020617, end: 20020729

REACTIONS (5)
  - UNEVALUABLE EVENT [None]
  - PAIN IN EXTREMITY [None]
  - DYSSTASIA [None]
  - DEEP VEIN THROMBOSIS [None]
  - OEDEMA PERIPHERAL [None]
